FAERS Safety Report 10438747 (Version 1)
Quarter: 2014Q3

REPORT INFORMATION
  Report Type: Spontaneous
  Country: US (occurrence: US)
  Receive Date: 20140908
  Receipt Date: 20140908
  Transmission Date: 20150326
  Serious: Yes (Hospitalization)
  Sender: FDA-Public Use
  Company Number: US-BRISTOL-MYERS SQUIBB COMPANY-19886902

PATIENT
  Age: 15 Year
  Sex: Male

DRUGS (2)
  1. SEROQUEL [Concomitant]
     Active Substance: QUETIAPINE FUMARATE
  2. ABILIFY [Suspect]
     Active Substance: ARIPIPRAZOLE
     Indication: SCHIZOPHRENIA
     Dosage: 2013-UNK: UNKNOWN DOSE?OCT2013-30NOV2013: 20MG/D?UNK-ONG: 20MG/D
     Dates: start: 2013

REACTIONS (2)
  - Adverse event [Unknown]
  - Drug dose omission [Unknown]
